FAERS Safety Report 16438374 (Version 1)
Quarter: 2019Q2

REPORT INFORMATION
  Report Type: Spontaneous
  Country: ES (occurrence: ES)
  Receive Date: 20190617
  Receipt Date: 20190617
  Transmission Date: 20190711
  Serious: Yes (Other)
  Sender: FDA-Public Use
  Company Number: ES-TEVA-2019-ES-1063281

PATIENT
  Age: 59 Year
  Sex: Male
  Weight: 96.3 kg

DRUGS (1)
  1. DOXAZOSINA RATIOPHARM 4 MG COMPRIMIDOS EFG , 28 COMPRIMIDOS [Suspect]
     Active Substance: DOXAZOSIN MESYLATE
     Indication: HYPERTENSION
     Dosage: 4 MILLIGRAM DAILY; 4 MG AT DINNER
     Route: 048
     Dates: start: 20190517

REACTIONS (2)
  - Oedema [Recovered/Resolved]
  - Dyspnoea exertional [Recovered/Resolved]

NARRATIVE: CASE EVENT DATE: 20190520
